FAERS Safety Report 18580722 (Version 9)
Quarter: 2021Q2

REPORT INFORMATION
  Report Type: Report from Study
  Country: US (occurrence: US)
  Receive Date: 20201204
  Receipt Date: 20210416
  Transmission Date: 20210717
  Serious: No
  Sender: FDA-Public Use
  Company Number: NVSC2020US322841

PATIENT
  Age: 31 Year
  Sex: Female

DRUGS (5)
  1. KESIMPTA [Suspect]
     Active Substance: OFATUMUMAB
     Indication: MULTIPLE SCLEROSIS
     Dosage: 20 MG
     Route: 058
     Dates: start: 20201118
  2. KESIMPTA [Suspect]
     Active Substance: OFATUMUMAB
     Dosage: UNK
     Route: 058
     Dates: start: 20210406
  3. GABAPENTIN. [Concomitant]
     Active Substance: GABAPENTIN
     Indication: PRODUCT USED FOR UNKNOWN INDICATION
     Dosage: UNK
     Route: 065
  4. BACLOFEN. [Concomitant]
     Active Substance: BACLOFEN
     Indication: PRODUCT USED FOR UNKNOWN INDICATION
     Dosage: UNK
     Route: 065
  5. ALBUTEROL. [Concomitant]
     Active Substance: ALBUTEROL
     Indication: PRODUCT USED FOR UNKNOWN INDICATION
     Dosage: UNK
     Route: 065

REACTIONS (25)
  - Fatigue [Recovered/Resolved]
  - Chills [Recovered/Resolved]
  - Peripheral swelling [Recovered/Resolved]
  - Muscle spasticity [Unknown]
  - Joint swelling [Unknown]
  - Headache [Recovered/Resolved]
  - Chills [Unknown]
  - Feeling hot [Unknown]
  - Hypoaesthesia [Unknown]
  - Nasopharyngitis [Unknown]
  - Dizziness [Unknown]
  - Arthropathy [Recovering/Resolving]
  - General physical health deterioration [Unknown]
  - Muscle spasms [Unknown]
  - Band sensation [Unknown]
  - Muscular weakness [Recovered/Resolved]
  - Influenza like illness [Recovered/Resolved]
  - Somnolence [Unknown]
  - Myalgia [Unknown]
  - Pain in extremity [Recovered/Resolved]
  - Dyspnoea [Unknown]
  - Gait inability [Unknown]
  - Fatigue [Recovered/Resolved]
  - Insomnia [Unknown]
  - Fatigue [Unknown]

NARRATIVE: CASE EVENT DATE: 20201118
